FAERS Safety Report 21340531 (Version 2)
Quarter: 2022Q3

REPORT INFORMATION
  Report Type: Report from Study
  Country: CA (occurrence: CA)
  Receive Date: 20220916
  Receipt Date: 20220923
  Transmission Date: 20221026
  Serious: Yes (Other)
  Sender: FDA-Public Use
  Company Number: CA-BRISTOL-MYERS SQUIBB COMPANY-2022-103425

PATIENT
  Age: 60 Year
  Sex: Female
  Weight: 0.00 kg

DRUGS (8)
  1. OPDIVO [Suspect]
     Active Substance: NIVOLUMAB
     Indication: Metastatic malignant melanoma
     Dosage: Q2 WEEKS: EXPIRY DATE: 30-NOV-2023
     Route: 042
     Dates: start: 20200812
  2. OPDIVO [Suspect]
     Active Substance: NIVOLUMAB
     Indication: Hepatocellular carcinoma
     Route: 042
     Dates: start: 20191121
  3. OPDIVO [Suspect]
     Active Substance: NIVOLUMAB
     Dosage: EXPIRY DATE: EXP 29-FEB-2024
     Route: 065
     Dates: start: 20220907
  4. SORAFENIB [Concomitant]
     Active Substance: SORAFENIB
  5. TRAZODONE [Concomitant]
     Active Substance: TRAZODONE HYDROCHLORIDE
  6. HYDROXYZINE [Concomitant]
     Active Substance: HYDROXYZINE HYDROCHLORIDE
  7. CARVEDILOL [Concomitant]
     Active Substance: CARVEDILOL
  8. DEXILANT [Concomitant]
     Active Substance: DEXLANSOPRAZOLE

REACTIONS (3)
  - Pneumonia [Recovered/Resolved]
  - Aphonia [Unknown]
  - Prescribed underdose [Unknown]

NARRATIVE: CASE EVENT DATE: 20220901
